FAERS Safety Report 8927938 (Version 1)
Quarter: 2012Q4

REPORT INFORMATION
  Report Type: Spontaneous
  Country: US (occurrence: None)
  Receive Date: 20121126
  Receipt Date: 20121126
  Transmission Date: 20130627
  Serious: Yes (Hospitalization)
  Sender: FDA-Public Use
  Company Number: None

PATIENT
  Age: 3 Year
  Sex: Male
  Weight: 17.4 kg

DRUGS (2)
  1. CHERATUSSIN AC [Suspect]
     Indication: COUGH
     Dosage: 3 cc every 6 hours po
     Route: 048
     Dates: start: 20121016, end: 20121124
  2. DELSYM [Concomitant]

REACTIONS (5)
  - Ataxia [None]
  - Miosis [None]
  - Altered state of consciousness [None]
  - Somnolence [None]
  - Tremor [None]
